FAERS Safety Report 9396285 (Version 3)
Quarter: 2014Q1

REPORT INFORMATION
  Report Type: Report from Study
  Country: US (occurrence: US)
  Receive Date: 20130711
  Receipt Date: 20140207
  Transmission Date: 20141002
  Serious: Yes (Death, Hospitalization, Other)
  Sender: FDA-Public Use
  Company Number: US-ALEXION PHARMACEUTICALS INC.-A201301565

PATIENT
  Sex: Female

DRUGS (29)
  1. SOLIRIS [Suspect]
     Indication: HAEMOLYTIC URAEMIC SYNDROME
     Dosage: 900 MG, X3 WEEKS
     Route: 042
     Dates: start: 201211, end: 201212
  2. AMLODIPINE BESYLATE [Concomitant]
     Indication: PRODUCT USED FOR UNKNOWN INDICATION
     Dosage: 10 MG, QD
     Route: 048
  3. AUGMENTIN [Concomitant]
     Indication: PRODUCT USED FOR UNKNOWN INDICATION
     Dosage: 875-125 MG, TID
     Route: 048
  4. BENADRYL [Concomitant]
     Indication: PRODUCT USED FOR UNKNOWN INDICATION
     Dosage: 25 MG, QID PRN
     Route: 048
  5. CARVEDIOL [Concomitant]
     Indication: PRODUCT USED FOR UNKNOWN INDICATION
     Dosage: 25 MG, BID
     Route: 048
  6. CLONIDINE HCL [Concomitant]
     Indication: PRODUCT USED FOR UNKNOWN INDICATION
     Dosage: 0.1 MG, PRN
     Route: 048
  7. DEXAMETHASONE [Concomitant]
     Indication: PROPHYLAXIS
     Dosage: 4 MG, BID TAKE FOR 1 DAY AFTER CHEMO
     Route: 048
  8. EMLA [Concomitant]
     Indication: PRODUCT USED FOR UNKNOWN INDICATION
     Dosage: 2.5%-2.5% 1 APPLICATION, AS DIRECTED
     Route: 061
  9. FENTANYL [Concomitant]
     Indication: PRODUCT USED FOR UNKNOWN INDICATION
     Dosage: 100 MCG/HR, Q72 HOURS AS DIRECTED
     Route: 062
  10. FLEXERIL [Concomitant]
     Indication: PRODUCT USED FOR UNKNOWN INDICATION
     Dosage: 10 MG, TID
     Route: 048
  11. HYDRALAZINE HCL [Concomitant]
     Indication: PRODUCT USED FOR UNKNOWN INDICATION
     Dosage: 100 MG, TID
     Route: 048
  12. KEPPRA [Concomitant]
     Indication: PRODUCT USED FOR UNKNOWN INDICATION
     Dosage: 500 MG, TID
     Route: 048
  13. LACTULOSE [Concomitant]
     Indication: PRODUCT USED FOR UNKNOWN INDICATION
     Dosage: 30 ML QD, PRN
     Route: 048
  14. LIDODERM [Concomitant]
     Indication: PRODUCT USED FOR UNKNOWN INDICATION
     Dosage: 700 MG, APPLY 1 PATCH TO AFFECTED AREA FOR 12 HOURS, THEN LEAVE OFF FOR 12 HOURS
     Route: 062
  15. LORAZEPAM [Concomitant]
     Indication: PRODUCT USED FOR UNKNOWN INDICATION
     Dosage: 1 MG, TID PRN
     Route: 048
  16. MIRALAX [Concomitant]
     Indication: PRODUCT USED FOR UNKNOWN INDICATION
     Dosage: 17 G, QD
     Route: 048
  17. MORPHINE SULFATE [Concomitant]
     Indication: PAIN
     Dosage: 1 ML, Q 1 HOUR PRN
     Route: 048
  18. MUCINEX D [Concomitant]
     Indication: PRODUCT USED FOR UNKNOWN INDICATION
     Dosage: 600 MG-60 MG, 2 TABLETS Q12 HOURS
     Route: 048
  19. NYSTATIN [Concomitant]
     Indication: PRODUCT USED FOR UNKNOWN INDICATION
     Dosage: 100000/G, 1 DF TID
     Route: 061
  20. OXYCODONE HYDROCHLORIDE [Concomitant]
     Indication: PAIN
     Dosage: 5 MG, 1 TABLET Q3-4 HOURS PRN
     Route: 048
  21. PROMETHAZINE HYDROCHLORIDE [Concomitant]
     Indication: NAUSEA
     Dosage: 12.5 MG, Q4H PRN
     Route: 048
  22. QUETIAPINE FUMARATE [Concomitant]
     Indication: PRODUCT USED FOR UNKNOWN INDICATION
     Dosage: 50 MG 1-2 TABLETS, HS PRN
     Route: 048
  23. RELISTOR [Concomitant]
     Indication: CONSTIPATION
     Dosage: 12 MG, QD PRN
     Route: 058
  24. SILVADENE [Concomitant]
     Indication: PRODUCT USED FOR UNKNOWN INDICATION
     Dosage: 1 APPLICATION, TID
     Route: 061
  25. STOOL SOFTENER [Concomitant]
     Indication: PRODUCT USED FOR UNKNOWN INDICATION
     Dosage: 8.6 MG-50 MG, 1 TABLET, BID
     Route: 048
  26. SUCRALFATE [Concomitant]
     Indication: PRODUCT USED FOR UNKNOWN INDICATION
     Dosage: 1 G, TID
     Route: 048
  27. TYLENOL EXTRA STRENGTH [Concomitant]
     Indication: PRODUCT USED FOR UNKNOWN INDICATION
     Dosage: 500 MG 2 TABLETS, BID
     Route: 048
  28. VITAMIN D2 [Concomitant]
     Indication: PRODUCT USED FOR UNKNOWN INDICATION
     Dosage: 50,000 UNIT 1 CAPSULE, Q 7 DAYS
     Route: 048
  29. ZOFRAN [Concomitant]
     Indication: PRODUCT USED FOR UNKNOWN INDICATION
     Dosage: 8 MG 1, TID PRN
     Route: 048

REACTIONS (11)
  - Metastatic carcinoma of the bladder [Fatal]
  - Investigation [Recovered/Resolved]
  - Renal cell carcinoma [Unknown]
  - Renal failure chronic [Unknown]
  - Dialysis [Unknown]
  - Depressed mood [Unknown]
  - Insomnia [Unknown]
  - Blood pressure increased [Unknown]
  - Anxiety [Unknown]
  - Fatigue [Unknown]
  - Sleep disorder [Unknown]
